FAERS Safety Report 21918911 (Version 1)
Quarter: 2023Q1

REPORT INFORMATION
  Report Type: Spontaneous
  Country: US (occurrence: US)
  Receive Date: 20230127
  Receipt Date: 20230127
  Transmission Date: 20230417
  Serious: Yes (Death, Hospitalization, Other)
  Sender: FDA-Public Use
  Company Number: US-PROCTER+GAMBLE-PH23000517

PATIENT
  Age: 76 Year
  Sex: Female

DRUGS (19)
  1. DIPHENHYDRAMINE HYDROCHLORIDE [Suspect]
     Active Substance: DIPHENHYDRAMINE HYDROCHLORIDE
     Dosage: UNK
  2. ACETAMINOPHEN [Suspect]
     Active Substance: ACETAMINOPHEN
     Dosage: 650 MG 1-2 TIMES A DAY
  3. ASPIRIN [Suspect]
     Active Substance: ASPIRIN
     Dosage: UNK
  4. CLOPIDOGREL [Suspect]
     Active Substance: CLOPIDOGREL BISULFATE
     Dosage: UNK
  5. DRONEDARONE [Suspect]
     Active Substance: DRONEDARONE
     Dosage: UNK
  6. FERROUS SULFATE [Suspect]
     Active Substance: FERROUS SULFATE
     Dosage: UNK
  7. ISOSORBIDE MONONITRATE [Suspect]
     Active Substance: ISOSORBIDE MONONITRATE
     Dosage: UNK
  8. LEVOTHYROXINE [Suspect]
     Active Substance: LEVOTHYROXINE
     Dosage: UNK
  9. LISINOPRIL [Suspect]
     Active Substance: LISINOPRIL
     Dosage: UNK
  10. LUBIPROSTONE [Suspect]
     Active Substance: LUBIPROSTONE
     Dosage: UNK
  11. MESALAMINE [Suspect]
     Active Substance: MESALAMINE
     Dosage: UNK
  12. METOPROLOL [Suspect]
     Active Substance: METOPROLOL
     Dosage: UNK
  13. NITROGLYCERIN [Suspect]
     Active Substance: NITROGLYCERIN
     Dosage: UNK
  14. FISH OIL [Suspect]
     Active Substance: FISH OIL
     Dosage: UNK
  15. OMEPRAZOLE [Suspect]
     Active Substance: OMEPRAZOLE
  16. ONDANSETRON [Suspect]
     Active Substance: ONDANSETRON
     Dosage: UNK
  17. ROSUVASTATIN [Suspect]
     Active Substance: ROSUVASTATIN
     Dosage: UNK
  18. HERBALS [Suspect]
     Active Substance: HERBALS
     Dosage: UNK
  19. SUCRALFATE [Suspect]
     Active Substance: SUCRALFATE
     Dosage: UNK

REACTIONS (36)
  - Arrhythmia [Fatal]
  - Atrial fibrillation [Fatal]
  - Abdominal pain upper [Unknown]
  - Nausea [Unknown]
  - Vomiting [Unknown]
  - Tachycardia [Unknown]
  - Lymphadenopathy mediastinal [Unknown]
  - Hilar lymphadenopathy [Unknown]
  - Duodenitis [Recovering/Resolving]
  - Fatigue [Unknown]
  - Decreased appetite [Unknown]
  - Abdominal distension [Unknown]
  - Restlessness [Unknown]
  - Pallor [Unknown]
  - Hypotension [Unknown]
  - Abdominal pain [Unknown]
  - Oesophageal candidiasis [Unknown]
  - Hypertransaminasaemia [Unknown]
  - Hypoglycaemia [Unknown]
  - Hepatotoxicity [Unknown]
  - Drug interaction [Unknown]
  - Alanine aminotransferase increased [Unknown]
  - Ammonia increased [Unknown]
  - Anion gap increased [Unknown]
  - Aspartate aminotransferase increased [Unknown]
  - Blood bilirubin increased [Unknown]
  - Blood alkaline phosphatase increased [Unknown]
  - Blood calcium increased [Unknown]
  - Blood creatinine increased [Unknown]
  - Blood lactic acid increased [Unknown]
  - White blood cell count increased [Unknown]
  - Haemoglobin decreased [Unknown]
  - Haematocrit decreased [Unknown]
  - Blood urea increased [Unknown]
  - Blood iron decreased [Unknown]
  - International normalised ratio increased [Unknown]
